FAERS Safety Report 5573711-2 (Version None)
Quarter: 2007Q4

REPORT INFORMATION
  Report Type: 
  Country: None (occurrence: None)
  Receive Date: 20071220
  Receipt Date: 20071204
  Transmission Date: 20080405
  Serious: Yes (Death, Other)
  Sender: FDA-Public Use
  Company Number: 2007US003139

PATIENT
  Age: 20 Year
  Sex: Female

DRUGS (1)
  1. PROGRAF [Suspect]
     Indication: LIVER TRANSPLANT
     Dosage: ORAL
     Route: 048

REACTIONS (6)
  - BRAIN HYPOXIA [None]
  - DRUG EXPOSURE DURING PREGNANCY [None]
  - HEPATITIS C [None]
  - PREGNANCY [None]
  - PREMATURE LABOUR [None]
  - RESPIRATORY FAILURE [None]
